FAERS Safety Report 9400445 (Version 3)
Quarter: 2013Q3

REPORT INFORMATION
  Report Type: Spontaneous
  Country: IT (occurrence: IT)
  Receive Date: 20130715
  Receipt Date: 20130724
  Transmission Date: 20140515
  Serious: Yes (Other)
  Sender: FDA-Public Use
  Company Number: IT-JNJFOC-20130701521

PATIENT
  Sex: 0

DRUGS (1)
  1. METHYLPHENIDATE HYDROCHLORIDE [Suspect]
     Indication: ATTENTION DEFICIT/HYPERACTIVITY DISORDER
     Dosage: 0.3-0.6 MG/KG/DOSE FOR 2 TO 3 DOSES PER DAY, AVERAGE WAS 18.4 ( /-10.5) MG/DAY.
     Route: 048

REACTIONS (14)
  - Bundle branch block right [Unknown]
  - Electrocardiogram QT prolonged [Unknown]
  - Conduction disorder [Unknown]
  - Convulsion [Unknown]
  - Mental disorder [Unknown]
  - Hypertension [Unknown]
  - Tachycardia [Unknown]
  - Sinus arrhythmia [Unknown]
  - Sinus tachycardia [Unknown]
  - Sinus bradycardia [Unknown]
  - Decreased appetite [Unknown]
  - Irritability [Unknown]
  - Headache [Unknown]
  - Drug ineffective [Unknown]
